FAERS Safety Report 15392508 (Version 1)
Quarter: 2018Q3

REPORT INFORMATION
  Report Type: Spontaneous
  Country: US (occurrence: US)
  Receive Date: 20180911
  Receipt Date: 20180911
  Transmission Date: 20181010
  Serious: No
  Sender: FDA-Public Use
  Company Number: None

PATIENT
  Age: 48 Year
  Sex: Male
  Weight: 71.1 kg

DRUGS (1)
  1. ONDANSETRON 8MG TABLETS [Suspect]
     Active Substance: ONDANSETRON HYDROCHLORIDE
     Indication: PROCEDURAL NAUSEA
     Dosage: ?          QUANTITY:15 TABLET(S);?
     Route: 048
     Dates: start: 20180911, end: 20180911

REACTIONS (2)
  - Nausea [None]
  - Vomiting [None]

NARRATIVE: CASE EVENT DATE: 20180911
